FAERS Safety Report 8535812-6 (Version None)
Quarter: 2012Q3

REPORT INFORMATION
  Report Type: 
  Country: None (occurrence: None)
  Receive Date: 20120725
  Receipt Date: 20120711
  Transmission Date: 20120928
  Serious: Yes (Hospitalization, Other)
  Sender: FDA-Public Use
  Company Number: PL-RANBAXY-2012RR-57530

PATIENT
  Age: 23 Year
  Sex: Female

DRUGS (9)
  1. IBUPROFEN [Suspect]
     Indication: LYMPHADENOPATHY
  2. IBUPROFEN [Suspect]
     Indication: INFLUENZA LIKE ILLNESS
     Route: 065
  3. IBUPROFEN [Suspect]
     Indication: GASTROENTERITIS
  4. ACETAMINOPHEN [Suspect]
     Indication: LYMPHADENOPATHY
  5. ACETAMINOPHEN [Suspect]
     Indication: INFLUENZA LIKE ILLNESS
     Route: 065
  6. CLARITHROMYCIN [Suspect]
     Indication: LYMPHADENOPATHY
  7. CLARITHROMYCIN [Suspect]
     Indication: INFLUENZA LIKE ILLNESS
     Dosage: UNK
     Route: 065
  8. CLARITHROMYCIN [Suspect]
     Indication: GASTROENTERITIS
  9. ACETAMINOPHEN [Suspect]
     Indication: GASTROENTERITIS

REACTIONS (3)
  - DERMATITIS EXFOLIATIVE [None]
  - ACUTE HEPATIC FAILURE [None]
  - ACUTE RESPIRATORY FAILURE [None]
